FAERS Safety Report 10960731 (Version 1)
Quarter: 2015Q1

REPORT INFORMATION
  Report Type: Spontaneous
  Country: US (occurrence: None)
  Receive Date: 20150326
  Receipt Date: 20150326
  Transmission Date: 20150721
  Serious: Yes (Hospitalization)
  Sender: FDA-Public Use
  Company Number: None

PATIENT
  Age: 25 Year
  Sex: Male

DRUGS (9)
  1. XYREM [Concomitant]
     Active Substance: SODIUM OXYBATE
  2. BUPROPRION [Concomitant]
     Active Substance: BUPROPION
  3. RETIN-A [Concomitant]
     Active Substance: TRETINOIN
  4. AZELAIC ACID [Concomitant]
     Active Substance: AZELAIC ACID
  5. MINOXIDIL 5% [Suspect]
     Active Substance: MINOXIDIL
     Indication: HAIR DISORDER
     Dates: start: 20150208, end: 20150317
  6. MINOCYCLINE [Concomitant]
     Active Substance: MINOCYCLINE\MINOCYCLINE HYDROCHLORIDE
  7. MILTIVITIAMIN [Concomitant]
  8. PROBIOTIC [Concomitant]
     Active Substance: PROBIOTICS NOS
  9. DEXMETHYLPHENIDATE [Concomitant]
     Active Substance: DEXMETHYLPHENIDATE HYDROCHLORIDE

REACTIONS (5)
  - Dyspnoea [None]
  - Tachycardia [None]
  - Pulmonary embolism [None]
  - Joint swelling [None]
  - Chest pain [None]

NARRATIVE: CASE EVENT DATE: 20150321
